FAERS Safety Report 11393720 (Version 9)
Quarter: 2016Q1

REPORT INFORMATION
  Report Type: Spontaneous
  Country: CA (occurrence: CA)
  Receive Date: 20150819
  Receipt Date: 20160121
  Transmission Date: 20160525
  Serious: Yes (Other)
  Sender: FDA-Public Use
  Company Number: CA-ROCHE-1621225

PATIENT
  Age: 60 Year
  Sex: Female

DRUGS (10)
  1. VENTOLIN [Concomitant]
     Active Substance: ALBUTEROL SULFATE
  2. XOLAIR [Interacting]
     Active Substance: OMALIZUMAB
     Route: 058
     Dates: start: 20160107
  3. XOLAIR [Suspect]
     Active Substance: OMALIZUMAB
     Indication: ASTHMA
     Route: 058
     Dates: start: 20150318
  4. XOLAIR [Interacting]
     Active Substance: OMALIZUMAB
     Route: 058
     Dates: start: 20150513
  5. XOLAIR [Interacting]
     Active Substance: OMALIZUMAB
     Route: 058
     Dates: start: 20150708
  6. ADVAIR HFA [Concomitant]
     Active Substance: FLUTICASONE PROPIONATE\SALMETEROL XINAFOATE
  7. XOLAIR [Interacting]
     Active Substance: OMALIZUMAB
     Route: 058
     Dates: start: 20150415
  8. PREDNISONE. [Concomitant]
     Active Substance: PREDNISONE
  9. XOLAIR [Interacting]
     Active Substance: OMALIZUMAB
     Route: 058
     Dates: start: 20150921
  10. VIMOVO [Interacting]
     Active Substance: ESOMEPRAZOLE MAGNESIUM\NAPROXEN
     Indication: ARTHRALGIA
     Dosage: SLOW RELEASE TABLET, 500/20MG
     Route: 065

REACTIONS (33)
  - Muscular weakness [Unknown]
  - Musculoskeletal discomfort [Unknown]
  - Osteoarthritis [Not Recovered/Not Resolved]
  - Wheezing [Unknown]
  - Pain in extremity [Unknown]
  - Rales [Unknown]
  - Influenza [Unknown]
  - Arthralgia [Unknown]
  - Mobility decreased [Unknown]
  - Blood pressure increased [Unknown]
  - Hypersensitivity [Recovered/Resolved]
  - Body temperature decreased [Unknown]
  - Weight bearing difficulty [Unknown]
  - Pain [Unknown]
  - Eczema [Unknown]
  - Eye haemorrhage [Unknown]
  - Myalgia [Unknown]
  - Cough [Unknown]
  - Influenza like illness [Unknown]
  - Musculoskeletal stiffness [Unknown]
  - Productive cough [Unknown]
  - Chest pain [Recovered/Resolved]
  - Weight increased [Unknown]
  - Eczema eyelids [Unknown]
  - Malaise [Unknown]
  - Increased appetite [Unknown]
  - Haemoptysis [Unknown]
  - Joint stiffness [Unknown]
  - Vitreous detachment [Unknown]
  - Visual acuity reduced [Unknown]
  - Drug interaction [Unknown]
  - Conjunctivitis allergic [Unknown]
  - Axillary pain [Recovered/Resolved]

NARRATIVE: CASE EVENT DATE: 20150322
